FAERS Safety Report 14742674 (Version 1)
Quarter: 2018Q2

REPORT INFORMATION
  Report Type: Report from Study
  Country: US (occurrence: US)
  Receive Date: 20180410
  Receipt Date: 20180410
  Transmission Date: 20180711
  Serious: Yes (Other)
  Sender: FDA-Public Use
  Company Number: US-ASTELLAS-2016US008306

PATIENT
  Age: 62 Year
  Sex: Female

DRUGS (1)
  1. REGADENOSON [Suspect]
     Active Substance: REGADENOSON
     Indication: SCAN MYOCARDIAL PERFUSION
     Dosage: 0.4 MG/5 ML BOLUS FOLLOWED BY A 5 ML SALINE FLUSH
     Route: 065

REACTIONS (1)
  - Ventricular tachycardia [Unknown]
